FAERS Safety Report 4964744-5 (Version None)
Quarter: 2006Q1

REPORT INFORMATION
  Report Type: 
  Country: None (occurrence: None)
  Receive Date: 20060331
  Receipt Date: 20060320
  Transmission Date: 20060701
  Serious: Yes (Hospitalization)
  Sender: FDA-Public Use
  Company Number: DE200603005486

PATIENT
  Age: 71 Year
  Sex: Female

DRUGS (12)
  1. ZYPREXA [Suspect]
     Indication: SCHIZOPHRENIA
     Dosage: SEE IMAGE
     Dates: start: 20050829, end: 20050829
  2. ZYPREXA [Suspect]
     Indication: SCHIZOPHRENIA
     Dosage: SEE IMAGE
     Dates: start: 20050830, end: 20050830
  3. ZYPREXA [Suspect]
     Indication: SCHIZOPHRENIA
     Dosage: SEE IMAGE
     Dates: start: 20050831, end: 20050908
  4. ZYPREXA [Suspect]
     Indication: SCHIZOPHRENIA
     Dosage: SEE IMAGE
     Dates: start: 20050909, end: 20050909
  5. ZYPREXA [Suspect]
     Indication: SCHIZOPHRENIA
     Dosage: SEE IMAGE
     Dates: start: 20050912, end: 20050912
  6. ZYPREXA [Suspect]
     Indication: SCHIZOPHRENIA
     Dosage: SEE IMAGE
     Dates: start: 20050913, end: 20050919
  7. ZYPREXA [Suspect]
     Indication: SCHIZOPHRENIA
     Dosage: SEE IMAGE
     Dates: start: 20050923, end: 20051004
  8. ZYPREXA [Suspect]
     Indication: SCHIZOPHRENIA
     Dosage: SEE IMAGE
     Dates: start: 20051005
  9. DREISAFER                   (ASCORBIC ACID, FERROUS SULFATE EXSICCATED [Concomitant]
  10. AKINETON [Concomitant]
  11. RISPERDAL [Concomitant]
  12. HALDOL SOLUTAB [Concomitant]

REACTIONS (5)
  - AKATHISIA [None]
  - DRUG LEVEL INCREASED [None]
  - DYSKINESIA [None]
  - PARANOIA [None]
  - PLEUROTHOTONUS [None]
